FAERS Safety Report 13888931 (Version 1)
Quarter: 2017Q3

REPORT INFORMATION
  Report Type: Spontaneous
  Country: US (occurrence: US)
  Receive Date: 20170822
  Receipt Date: 20170822
  Transmission Date: 20171127
  Serious: No
  Sender: FDA-Public Use
  Company Number: US-ROCHE-1102200

PATIENT
  Sex: Female

DRUGS (4)
  1. ACTEMRA [Suspect]
     Active Substance: TOCILIZUMAB
     Indication: RHEUMATOID ARTHRITIS
     Route: 042
  2. REMICADE [Concomitant]
     Active Substance: INFLIXIMAB
     Route: 065
  3. ENBREL [Concomitant]
     Active Substance: ETANERCEPT
     Route: 065
  4. CIMZIA [Concomitant]
     Active Substance: CERTOLIZUMAB PEGOL
     Route: 065

REACTIONS (6)
  - Muscle twitching [Unknown]
  - Vaginal infection [Unknown]
  - Nasal disorder [Unknown]
  - Urinary tract disorder [Unknown]
  - Urinary tract infection [Unknown]
  - Fatigue [Unknown]
